FAERS Safety Report 6370780-7 (Version None)
Quarter: 2009Q3

REPORT INFORMATION
  Report Type: 
  Country: None (occurrence: None)
  Receive Date: 20090923
  Receipt Date: 20070625
  Transmission Date: 20100115
  Serious: Yes (Other)
  Sender: FDA-Public Use
  Company Number: US-ASTRAZENECA-2006UW23670

PATIENT
  Age: 23984 Day
  Sex: Female
  Weight: 70.3 kg

DRUGS (21)
  1. SEROQUEL [Suspect]
     Indication: SCHIZOPHRENIA
     Dosage: 100 - 400 MG
     Route: 048
     Dates: start: 20020604
  2. ABILIFY [Concomitant]
  3. RISPERDAL [Concomitant]
  4. ZYPREXA [Concomitant]
  5. DIAZEPAM [Concomitant]
  6. REMERON [Concomitant]
     Dosage: 15 MG- 45 MG
  7. NEURONTIN [Concomitant]
  8. PLENDIL [Concomitant]
  9. LEVAQUIN [Concomitant]
  10. PAXIL [Concomitant]
     Indication: DEPRESSION
     Dosage: 10 MG - 20 MG
  11. PAXIL [Concomitant]
     Indication: ANXIETY
     Dosage: 10 MG - 20 MG
  12. PREVACID [Concomitant]
     Indication: GASTROOESOPHAGEAL REFLUX DISEASE
  13. GLUCOTROL [Concomitant]
  14. PIROXICAM [Concomitant]
  15. PROLIXIN [Concomitant]
     Dosage: 2.5 MG - 5 MG
  16. LASIX [Concomitant]
  17. ATIVAN [Concomitant]
     Dates: start: 20020608
  18. VALIUM [Concomitant]
     Indication: ANXIETY
  19. AMBIEN [Concomitant]
  20. LISINOPRIL [Concomitant]
     Route: 048
  21. CITALOPRAM HYDROCHLORIDE [Concomitant]
     Dosage: 10 MG - 20 MG
     Dates: start: 20050706

REACTIONS (3)
  - DIABETES MELLITUS [None]
  - PANCREATITIS [None]
  - TYPE 1 DIABETES MELLITUS [None]
